FAERS Safety Report 8764502 (Version 4)
Quarter: 2013Q2

REPORT INFORMATION
  Report Type: Spontaneous
  Country: US (occurrence: US)
  Receive Date: 20120831
  Receipt Date: 20130415
  Transmission Date: 20140414
  Serious: Yes (Hospitalization, Other)
  Sender: FDA-Public Use
  Company Number: US-009507513-1203USA00789

PATIENT
  Sex: Female
  Weight: 69.84 kg

DRUGS (9)
  1. FOSAMAX [Suspect]
     Indication: OSTEOPOROSIS
     Dosage: 70 MG, QW
     Route: 048
     Dates: start: 200311, end: 20070102
  2. BONIVA [Suspect]
     Indication: OSTEOPOROSIS
     Dosage: 150 MG, UNK
     Route: 048
     Dates: start: 200701, end: 200807
  3. BONIVA [Suspect]
     Indication: OSTEOPENIA
  4. MICARDIS [Concomitant]
     Indication: HYPERTENSION
     Dosage: 40 MG, UNK
     Dates: start: 1993
  5. IBUPROFEN [Concomitant]
     Indication: BACK PAIN
     Dosage: UNK
     Dates: start: 197608
  6. OMEPRAZOLE [Concomitant]
     Indication: GASTROOESOPHAGEAL REFLUX DISEASE
     Dosage: UNK
     Dates: start: 2002
  7. LOPRESSOR [Concomitant]
     Indication: HYPERTENSION
  8. ACIPHEX [Concomitant]
     Indication: GASTROOESOPHAGEAL REFLUX DISEASE
     Dosage: UNK
     Dates: start: 2002
  9. AMITRIPTYLINE HYDROCHLORIDE [Concomitant]
     Indication: DEPRESSION
     Dosage: UNK
     Dates: start: 1980

REACTIONS (40)
  - Femur fracture [Unknown]
  - Open reduction of fracture [Recovering/Resolving]
  - Shoulder operation [Unknown]
  - Rotator cuff repair [Unknown]
  - Appendicectomy [Unknown]
  - Tonsillectomy [Unknown]
  - Osteonecrosis [Unknown]
  - Female sterilisation [Unknown]
  - Femur fracture [Recovering/Resolving]
  - Ankle fracture [Unknown]
  - Ankle fracture [Unknown]
  - Vitamin D decreased [Unknown]
  - Vitamin D decreased [Unknown]
  - Adverse event [Unknown]
  - Low turnover osteopathy [Unknown]
  - Stress [Unknown]
  - Bursitis [Unknown]
  - Spinal osteoarthritis [Unknown]
  - Fall [Unknown]
  - Red blood cells urine positive [Unknown]
  - Fibromyalgia [Unknown]
  - Gait disturbance [Recovered/Resolved]
  - Haemorrhagic anaemia [Unknown]
  - Myositis [Unknown]
  - Nerve compression [Unknown]
  - Rhonchi [Unknown]
  - Exercise lack of [Unknown]
  - Osteoarthritis [Unknown]
  - Osteoarthritis [Unknown]
  - Rotator cuff syndrome [Unknown]
  - Joint dislocation [Unknown]
  - Ligament sprain [Unknown]
  - Fibula fracture [Unknown]
  - Drug ineffective [Unknown]
  - Musculoskeletal discomfort [Unknown]
  - Abdominal discomfort [Unknown]
  - Myalgia [Unknown]
  - Arthralgia [Unknown]
  - Drug ineffective [Unknown]
  - Headache [Unknown]
